FAERS Safety Report 12425555 (Version 1)
Quarter: 2016Q2

REPORT INFORMATION
  Report Type: Spontaneous
  Country: US (occurrence: US)
  Receive Date: 20160601
  Receipt Date: 20160601
  Transmission Date: 20160815
  Serious: Yes (Other)
  Sender: FDA-Public Use
  Company Number: US-SA-2016SA103413

PATIENT
  Age: 72 Year
  Sex: Female

DRUGS (4)
  1. LEVEMIR [Concomitant]
     Active Substance: INSULIN DETEMIR
  2. NOVOLOG [Concomitant]
     Active Substance: INSULIN ASPART
  3. LANTUS SOLOSTAR [Suspect]
     Active Substance: INSULIN GLARGINE
     Indication: TYPE 2 DIABETES MELLITUS
     Dosage: DOSE: 20-25 UNITS
     Route: 065
     Dates: start: 2015
  4. SOLOSTAR [Concomitant]
     Active Substance: DEVICE
     Dosage: DOSE: 20-25 UNITS
     Route: 065
     Dates: start: 2015

REACTIONS (5)
  - Visual impairment [Unknown]
  - Malaise [Unknown]
  - Blood glucose increased [Unknown]
  - Cardiac disorder [Unknown]
  - Pain in extremity [Unknown]
